FAERS Safety Report 11100232 (Version 1)
Quarter: 2015Q2

REPORT INFORMATION
  Report Type: Spontaneous
  Country: US (occurrence: None)
  Receive Date: 20150507
  Receipt Date: 20150507
  Transmission Date: 20150821
  Serious: Yes (Other)
  Sender: FDA-Public Use
  Company Number: None

PATIENT
  Age: 65 Year
  Sex: Male
  Weight: 80.74 kg

DRUGS (4)
  1. KLONOPIN [Suspect]
     Active Substance: CLONAZEPAM
     Indication: PANIC REACTION
     Dosage: 2MG  TWICE DAILY  TWICE DAILY  TAKEN BY MOUTH
     Route: 048
  2. ATIVAN [Concomitant]
     Active Substance: LORAZEPAM
  3. KLONOPIN [Suspect]
     Active Substance: CLONAZEPAM
     Indication: ANXIETY DISORDER
     Dosage: 2MG  TWICE DAILY  TWICE DAILY  TAKEN BY MOUTH
     Route: 048
  4. CLONAZEPAM. [Concomitant]
     Active Substance: CLONAZEPAM

REACTIONS (9)
  - Drug effect decreased [None]
  - Decreased appetite [None]
  - Hyperaesthesia [None]
  - Lethargy [None]
  - Burning sensation [None]
  - Malaise [None]
  - Product quality issue [None]
  - Pyrexia [None]
  - Product substitution issue [None]

NARRATIVE: CASE EVENT DATE: 20150301
